FAERS Safety Report 7888124-8 (Version None)
Quarter: 2011Q4

REPORT INFORMATION
  Report Type: 
  Country: None (occurrence: None)
  Receive Date: 20111103
  Receipt Date: 20111027
  Transmission Date: 20120403
  Serious: Yes (Other)
  Sender: FDA-Public Use
  Company Number: US-JNJFOC-20111012811

PATIENT
  Sex: Male
  Weight: 90.72 kg

DRUGS (3)
  1. ZOLOFT [Concomitant]
     Indication: DEPRESSION
     Route: 065
     Dates: start: 20111001
  2. ZOLOFT [Concomitant]
     Route: 065
     Dates: end: 20110901
  3. RAZADYNE ER [Suspect]
     Indication: HEAD INJURY
     Route: 048
     Dates: start: 20101101, end: 20111024

REACTIONS (4)
  - HYPERHIDROSIS [None]
  - DEPRESSION [None]
  - ATTENTION DEFICIT/HYPERACTIVITY DISORDER [None]
  - THERAPY CESSATION [None]
